FAERS Safety Report 19700553 (Version 1)
Quarter: 2021Q3

REPORT INFORMATION
  Report Type: Spontaneous
  Country: DO (occurrence: DO)
  Receive Date: 20210813
  Receipt Date: 20210813
  Transmission Date: 20211014
  Serious: Yes (Other)
  Sender: FDA-Public Use
  Company Number: DO-SA-2021SA266502

PATIENT
  Age: 4 Year
  Sex: Female

DRUGS (2)
  1. DERMIZINC [Concomitant]
     Indication: DERMATITIS ATOPIC
     Dosage: UNK
     Route: 065
  2. ALLEGRA [Suspect]
     Active Substance: FEXOFENADINE HYDROCHLORIDE
     Indication: DERMATITIS ATOPIC
     Dosage: UNK
     Route: 048

REACTIONS (4)
  - Intentional product misuse [Unknown]
  - Skin abrasion [Unknown]
  - Eczema [Unknown]
  - Dermatitis atopic [Unknown]
